FAERS Safety Report 7015480-5 (Version None)
Quarter: 2010Q3

REPORT INFORMATION
  Report Type: 
  Country: None (occurrence: None)
  Receive Date: 20100927
  Receipt Date: 20100916
  Transmission Date: 20110219
  Serious: Yes (Hospitalization)
  Sender: FDA-Public Use
  Company Number: BR-ASTRAZENECA-2010SE43959

PATIENT
  Age: 700 Month
  Sex: Male
  Weight: 82 kg

DRUGS (8)
  1. ATENOLOL [Suspect]
     Indication: HYPERTENSION
     Route: 048
     Dates: start: 20080101
  2. CRESTOR [Suspect]
     Indication: HYPERCHOLESTEROLAEMIA
     Route: 048
     Dates: start: 20100902
  3. ACETAMINOPHEN [Concomitant]
     Route: 048
     Dates: start: 20080101
  4. SUSTRATE [Concomitant]
     Route: 048
     Dates: start: 20080101
  5. ASA PEADIATRIC [Concomitant]
     Route: 048
     Dates: start: 20080101
  6. PRESSAT [Concomitant]
     Route: 048
     Dates: start: 20080101
  7. CLOPIDOGREL [Concomitant]
     Route: 048
     Dates: start: 20080101
  8. ARADOIS [Concomitant]
     Route: 048
     Dates: start: 20080101

REACTIONS (3)
  - CHEST PAIN [None]
  - ISCHAEMIA [None]
  - OVERDOSE [None]
